FAERS Safety Report 10418170 (Version 1)
Quarter: 2014Q3

REPORT INFORMATION
  Report Type: Spontaneous
  Country: US (occurrence: US)
  Receive Date: 20140829
  Receipt Date: 20140829
  Transmission Date: 20150326
  Serious: Yes (Disabling, Other)
  Sender: FDA-Public Use
  Company Number: US-SA-2014SA116861

PATIENT
  Age: 59 Year
  Sex: Female

DRUGS (1)
  1. ALLEGRA [Suspect]
     Active Substance: FEXOFENADINE HYDROCHLORIDE
     Indication: MULTIPLE ALLERGIES
     Dosage: DOSE- 180MG (CUT IN HALF)
     Route: 048

REACTIONS (4)
  - Nephrolithiasis [Recovered/Resolved]
  - Nasal congestion [Recovered/Resolved]
  - Disability [Recovered/Resolved]
  - Wrong technique in drug usage process [Unknown]
